FAERS Safety Report 9184088 (Version 1)
Quarter: 2012Q4

REPORT INFORMATION
  Report Type: 
  Country: FR (occurrence: FR)
  Receive Date: 20121031
  Receipt Date: 20121031
  Transmission Date: 20130627
  Serious: Yes (Other)
  Sender: FDA-Public Use
  Company Number: FR-OTSUKA-US-2012-11600

PATIENT
  Age: 62 None
  Sex: Female

DRUGS (13)
  1. BUSULFEX [Suspect]
     Indication: BONE MARROW CONDITIONING REGIMEN
     Dosage: UNK
     Route: 042
     Dates: start: 20101007, end: 20101009
  2. LARGACTIL [Suspect]
     Indication: PRODUCT USED FOR UNKNOWN INDICATION
     Dosage: UNK
     Route: 042
     Dates: start: 20111010
  3. FLUDARA [Suspect]
     Indication: BONE MARROW CONDITIONING REGIMEN
     Dosage: UNK
     Route: 042
     Dates: start: 20101006, end: 20101010
  4. THYMOGLOBULINE [Suspect]
     Indication: BONE MARROW CONDITIONING REGIMEN
     Dosage: UNK
     Route: 065
     Dates: start: 20101009, end: 20101010
  5. CICLOSPORIN [Concomitant]
  6. EFFEXOR [Concomitant]
  7. IMOVANE [Concomitant]
  8. XANAX [Concomitant]
  9. ZOVIRAX [Concomitant]
  10. FLAGYL [Concomitant]
  11. RIVOTRIL [Concomitant]
  12. ZOPHREN [Concomitant]
  13. PLITICAN [Concomitant]

REACTIONS (2)
  - Gamma-glutamyltransferase increased [Recovered/Resolved]
  - Transaminases increased [Recovered/Resolved]
